FAERS Safety Report 5977475-X (Version None)
Quarter: 2008Q4

REPORT INFORMATION
  Report Type: 
  Country: None (occurrence: None)
  Receive Date: 20081125
  Receipt Date: 20081112
  Transmission Date: 20090506
  Serious: Yes (Hospitalization, Other)
  Sender: FDA-Public Use
  Company Number: DSU-2008-01746

PATIENT
  Age: 77 Year
  Sex: Female
  Weight: 61.2356 kg

DRUGS (6)
  1. BENICAR [Suspect]
     Indication: HYPERTENSION
     Dosage: PER ORAL
     Route: 048
  2. SUTENT [Suspect]
     Indication: MALIGNANT NEOPLASM OF RENAL PELVIS
     Dosage: 50 MG (50 MG, QD), PER ORAL
     Route: 048
     Dates: start: 20080827, end: 20080907
  3. UNSPECIFIED CHEMOTHERAPY TREATMENT (OTHER CHEMOTHERAPEUTICS) [Suspect]
     Indication: MALIGNANT NEOPLASM OF RENAL PELVIS
  4. TOPROL (METOPROLOL) (TABLET) (METOPROLOL) [Concomitant]
  5. DIGOXIN (DIGOXIN) (TABLET) (DIGOXIN) [Concomitant]
  6. LEXAPRO (ESCITALOPRAM OXALATE) (TABLET) (ESCITALOPRAM) [Concomitant]

REACTIONS (4)
  - DEHYDRATION [None]
  - FEELING ABNORMAL [None]
  - MALIGNANT NEOPLASM OF RENAL PELVIS [None]
  - NEUROPATHY PERIPHERAL [None]
